FAERS Safety Report 12543279 (Version 1)
Quarter: 2016Q3

REPORT INFORMATION
  Report Type: Spontaneous
  Country: US (occurrence: US)
  Receive Date: 20160711
  Receipt Date: 20160711
  Transmission Date: 20161109
  Serious: No
  Sender: FDA-Public Use
  Company Number: US-ASTRAZENECA-2016SE69499

PATIENT
  Age: 31540 Day
  Sex: Female
  Weight: 56.2 kg

DRUGS (2)
  1. MOVANTIK [Suspect]
     Active Substance: NALOXEGOL OXALATE
     Indication: CONSTIPATION
     Route: 048
     Dates: start: 20160622
  2. OXYCODONE [Concomitant]
     Active Substance: OXYCODONE
     Dosage: 5MG, 2 TO 3 TIMES A DAY
     Route: 048

REACTIONS (2)
  - Abdominal pain [Unknown]
  - Faeces soft [Unknown]

NARRATIVE: CASE EVENT DATE: 20160622
